FAERS Safety Report 9650750 (Version 1)
Quarter: 2013Q4

REPORT INFORMATION
  Report Type: Spontaneous
  Country: SI (occurrence: SI)
  Receive Date: 20131029
  Receipt Date: 20131029
  Transmission Date: 20140711
  Serious: Yes (Life-Threatening, Hospitalization, Other)
  Sender: FDA-Public Use
  Company Number: SI-009507513-1310SVN011628

PATIENT
  Age: 66 Year
  Sex: Male

DRUGS (4)
  1. TEMODAL [Suspect]
     Indication: GLIOBLASTOMA
     Dosage: 140/160 MG TOTAL DAILY DOSE
     Route: 048
     Dates: start: 20130423, end: 20130522
  2. MEDROL [Concomitant]
     Indication: BRAIN OEDEMA
     Dosage: UNK
     Route: 048
     Dates: start: 20130307
  3. LYRICA [Concomitant]
     Dosage: UNK, BID (2X/DAY)
     Route: 048
     Dates: start: 201302, end: 201304
  4. ENAP-H [Concomitant]
     Indication: HYPERTENSION
     Dosage: 1 DF, QD, STOPPED: 6 YEARS
     Route: 048

REACTIONS (6)
  - Pulmonary embolism [Unknown]
  - Thrombocytopenia [Not Recovered/Not Resolved]
  - Leukopenia [Unknown]
  - Neutropenia [Unknown]
  - Lymphopenia [Unknown]
  - Anaemia [Unknown]
